FAERS Safety Report 4417920-4 (Version None)
Quarter: 2004Q2

REPORT INFORMATION
  Report Type: 
  Country: None (occurrence: None)
  Receive Date: 20040622
  Receipt Date: 20040412
  Transmission Date: 20050107
  Serious: Yes (Death)
  Sender: FDA-Public Use
  Company Number: 364408

PATIENT
  Age: 45 Year
  Sex: Male

DRUGS (5)
  1. XELODA [Suspect]
     Indication: CARCINOMA
     Dosage: ORAL
     Route: 048
     Dates: start: 20040115
  2. PROTONIX [Concomitant]
  3. LASIX [Concomitant]
  4. OXYCONTIN [Concomitant]
  5. LEVAQUIN (LEVOFLOXACINE) [Concomitant]

REACTIONS (1)
  - MALIGNANT NEOPLASM PROGRESSION [None]
